FAERS Safety Report 7828375-1 (Version None)
Quarter: 2011Q4

REPORT INFORMATION
  Report Type: 
  Country: None (occurrence: None)
  Receive Date: 20111020
  Receipt Date: 20111017
  Transmission Date: 20120403
  Serious: No
  Sender: FDA-Public Use
  Company Number: US-PFIZER INC-2011249102

PATIENT
  Sex: Male
  Weight: 82 kg

DRUGS (3)
  1. MS CONTIN [Concomitant]
     Indication: PAIN
     Dosage: 20 MG, UNK
  2. SUTENT [Suspect]
     Indication: GASTROINTESTINAL STROMAL TUMOUR
     Dosage: 50 MG, 1X/DAY
     Route: 048
     Dates: start: 20111004
  3. OXYCODONE [Concomitant]
     Indication: PAIN
     Dosage: 5 MG, UNK

REACTIONS (1)
  - ORAL PAIN [None]
